FAERS Safety Report 18012425 (Version 3)
Quarter: 2020Q3

REPORT INFORMATION
  Report Type: Spontaneous
  Country: US (occurrence: US)
  Receive Date: 20200713
  Receipt Date: 20200813
  Transmission Date: 20201103
  Serious: Yes (Hospitalization, Other)
  Sender: FDA-Public Use
  Company Number: US-AMGEN-USASP2020111401

PATIENT
  Age: 95 Year
  Sex: Female
  Weight: 46.5 kg

DRUGS (31)
  1. EVENITY [Suspect]
     Active Substance: ROMOSOZUMAB-AQQG
     Indication: OSTEOPOROSIS POSTMENOPAUSAL
     Dosage: 210 MILLIGRAM, QMO
     Route: 058
     Dates: start: 20190611, end: 202006
  2. MAALOX ADVANCED [CALCIUM CARBONATE;SIMETICONE] [Concomitant]
     Dosage: UNK (REGULAR STRENGTH ORAL SUSPENSION)
     Route: 048
     Dates: start: 20200617
  3. COLACE [Concomitant]
     Active Substance: DOCUSATE SODIUM
     Dosage: 100 MILLIGRAM
     Route: 048
     Dates: start: 20200617
  4. ATORVASTATIN [Concomitant]
     Active Substance: ATORVASTATIN
     Dosage: 40 MILLIGRAM 1 TABS
     Route: 048
     Dates: start: 20200617
  5. NITROGLYCERINE [Concomitant]
     Active Substance: NITROGLYCERIN
     Dosage: 0.4 MILLIGRAM (Q5MIN?INT PRN OTHER)
     Route: 060
     Dates: start: 20200617
  6. PANTOPRAZOL [PANTOPRAZOLE] [Concomitant]
     Active Substance: PANTOPRAZOLE
     Dosage: UNK
  7. MILK OF MAGNESIA [Concomitant]
     Active Substance: MAGNESIUM HYDROXIDE
     Indication: CONSTIPATION
     Dosage: UNK (SUSPENSION,30 ML, ORAL, SUSP, Q6H PRN CONSTIPATION)
     Route: 048
     Dates: start: 20200617
  8. MIRALAX [Concomitant]
     Active Substance: POLYETHYLENE GLYCOL 3350
     Indication: CONSTIPATION
     Dosage: 17 GRAM, QD (POWDER?RECON)PRN CONSTIPATION
     Route: 048
     Dates: start: 20200617
  9. OMNIPAQUE [Concomitant]
     Active Substance: IOHEXOL
     Dosage: UNK (350,35,000 MG = 100 ML, IV PUSH, INJECTION?SOLN, ONCE,)
     Route: 042
     Dates: start: 20200617, end: 20200617
  10. DOCUSATE [Concomitant]
     Active Substance: DOCUSATE
     Dosage: 100 MILLIGRAM
     Route: 048
     Dates: start: 20200617
  11. VITAMIN D [COLECALCIFEROL] [Concomitant]
     Active Substance: CHOLECALCIFEROL
     Dosage: UNK
  12. LISINOPRIL. [Concomitant]
     Active Substance: LISINOPRIL
     Dosage: UNK
  13. ONDANSETRON [Concomitant]
     Active Substance: ONDANSETRON
     Indication: NAUSEA
     Dosage: 4 MILLIGRAM (IV PUSH, INJECTION, 06H PRN NAUSEA/VOMITING)
     Dates: start: 20200617
  14. ASPIRIN [ACETYLSALICYLIC ACID] [Concomitant]
     Active Substance: ASPIRIN
     Dosage: 81 MILLIGRAM, QD
     Route: 048
     Dates: start: 20200618
  15. CALCIUM [Concomitant]
     Active Substance: CALCIUM
     Dosage: UNK
  16. LABETALOL [Concomitant]
     Active Substance: LABETALOL\LABETALOL HYDROCHLORIDE
     Indication: HYPERTENSION
     Dosage: 5 MILLIGRAM (5 MG = 1 ML, IV PUSH, INJECTION QLOMIN?INT PRN HYPERTENSION)
     Dates: start: 20200617
  17. TYLENOL [Concomitant]
     Active Substance: ACETAMINOPHEN
     Indication: PYREXIA
  18. MYRBETRIQ [Concomitant]
     Active Substance: MIRABEGRON
     Dosage: 50 MILLIGRAM, QD
     Route: 048
  19. ACETAMINOPHEN. [Concomitant]
     Active Substance: ACETAMINOPHEN
     Indication: PYREXIA
     Dosage: 650 MILLIGRAM (QBH PRN FEVER, TEMP GREATER THAN 38.5 C, PRN PAIN, MILD (PAIN SCORE 1?3),)
     Route: 048
     Dates: start: 20200617
  20. ENOXAPARIN [Concomitant]
     Active Substance: ENOXAPARIN
     Dosage: UNK
  21. NITROSTAT [Concomitant]
     Active Substance: NITROGLYCERIN
     Dosage: 0.4 MILLIGRAM (TAB, Q5MIN?INT PRN OTHER)
     Route: 060
     Dates: start: 20200617
  22. PEPCID [ALUMINIUM HYDROXIDE GEL, DRIED;MAGNESIUM CARBONATE] [Concomitant]
     Active Substance: ALUMINUM HYDROXIDE\MAGNESIUM CARBONATE
     Indication: DYSPEPSIA
     Dosage: 20 MILLIGRAM (PRN INDIGESTION)
     Route: 048
     Dates: start: 20200617
  23. VITAMIN D3 [Concomitant]
     Active Substance: CHOLECALCIFEROL
     Dosage: UNK UNK, QD (1,000 INTLUNIT = I CAP)
     Route: 048
  24. FAMOTIDINE. [Concomitant]
     Active Substance: FAMOTIDINE
     Indication: DYSPEPSIA
     Dosage: 20 MILLIGRAM (Q24H PRN INDIGESTION)
     Route: 048
     Dates: start: 20200617
  25. MAGNESIUM HYDROXIDE. [Concomitant]
     Active Substance: MAGNESIUM HYDROXIDE
     Indication: CONSTIPATION
     Dosage: UNK (30 ML, ORAL, SUSP, Q6H PRN CONSTIPATION)
     Route: 048
     Dates: start: 20200617
  26. HEPARIN [Concomitant]
     Active Substance: HEPARIN SODIUM
     Dosage: UNK UNK, BID (5,000 UNITS = 1 ML)
     Route: 058
     Dates: start: 20200618
  27. SENOKOT [Concomitant]
     Active Substance: SENNOSIDES
     Indication: CONSTIPATION
     Dosage: 8.6 MILLIGRAM, BID
     Route: 048
     Dates: start: 20200617
  28. TYLENOL [Concomitant]
     Active Substance: ACETAMINOPHEN
     Indication: PAIN
     Dosage: 650 MILLIGRAM (PRN PAIN, MILD (PAIN SCORE 1?3),)
     Route: 048
     Dates: start: 20200617
  29. ALUMINUM HYDROXIDE [ALUMINIUM HYDROXIDE] [Concomitant]
     Active Substance: ALUMINUM HYDROXIDE
     Dosage: UNK (30 ML, ORAL, SUSP, Q6H PRN INDIGESTION)
     Route: 048
     Dates: start: 20200617
  30. MAGNESIUM HYDROXIDE;SIMETHICONE [Concomitant]
     Indication: DYSPEPSIA
     Dosage: UNK (30 ML, ORAL, SUSP, Q6H PRN INDIGESTION)
     Dates: start: 20200617
  31. ONDANSETRON [Concomitant]
     Active Substance: ONDANSETRON
     Indication: VOMITING

REACTIONS (7)
  - Acute myocardial infarction [Unknown]
  - Acute respiratory failure [Unknown]
  - Varicose ulceration [Unknown]
  - Encephalopathy [Unknown]
  - Brain oedema [Unknown]
  - Cerebrovascular accident [Recovered/Resolved]
  - Fall [Unknown]

NARRATIVE: CASE EVENT DATE: 2020
